FAERS Safety Report 5867207-8 (Version None)
Quarter: 2008Q3

REPORT INFORMATION
  Report Type: 
  Country: None (occurrence: None)
  Receive Date: 20080829
  Receipt Date: 20080829
  Transmission Date: 20090109
  Serious: Yes (Life-Threatening)
  Sender: FDA-Public Use
  Company Number: None

PATIENT
  Age: 27 Year
  Sex: Female
  Weight: 63.5036 kg

DRUGS (1)
  1. BUDEPRION XL 150 MG [Suspect]
     Indication: POSTPARTUM DEPRESSION
     Dosage: 150 MG 2 X DAILY PO
     Route: 048
     Dates: start: 20080809, end: 20080828

REACTIONS (8)
  - ANOREXIA [None]
  - DEPRESSION [None]
  - FEELING GUILTY [None]
  - FEELING JITTERY [None]
  - INSOMNIA [None]
  - IRRITABILITY [None]
  - MOOD SWINGS [None]
  - THERAPEUTIC RESPONSE UNEXPECTED WITH DRUG SUBSTITUTION [None]
